FAERS Safety Report 9422392 (Version 2)
Quarter: 2013Q4

REPORT INFORMATION
  Report Type: Spontaneous
  Country: DE (occurrence: JP)
  Receive Date: 20130726
  Receipt Date: 20131028
  Transmission Date: 20140711
  Serious: Yes (Other)
  Sender: FDA-Public Use
  Company Number: JP-BRACCO-007248

PATIENT
  Age: 79 Year
  Sex: Male
  Weight: 57 kg

DRUGS (1)
  1. IOPAMIRON [Suspect]
     Indication: COMPUTERISED TOMOGRAM
     Route: 042
     Dates: start: 20130716, end: 20130716

REACTIONS (1)
  - Anaphylactoid reaction [Recovered/Resolved]
